FAERS Safety Report 13424808 (Version 1)
Quarter: 2017Q2

REPORT INFORMATION
  Report Type: Spontaneous
  Country: US (occurrence: US)
  Receive Date: 20170410
  Receipt Date: 20170410
  Transmission Date: 20170830
  Serious: Yes (Hospitalization)
  Sender: FDA-Public Use
  Company Number: US-BAUSCH-SYM-2013-08241

PATIENT
  Age: 68 Year
  Sex: Male

DRUGS (7)
  1. TARGRETIN [Suspect]
     Active Substance: BEXAROTENE
     Route: 048
     Dates: end: 201104
  2. TARGRETIN [Suspect]
     Active Substance: BEXAROTENE
     Dosage: DOSE SLOWLY TAPERED DOWN (UNSPECIFIED)
     Route: 048
  3. TERAZOSIN [Concomitant]
     Active Substance: TERAZOSIN\TERAZOSIN HYDROCHLORIDE
     Indication: BENIGN PROSTATIC HYPERPLASIA
  4. ATENOLOL. [Concomitant]
     Active Substance: ATENOLOL
     Indication: HYPERTENSION
  5. TARGRETIN [Suspect]
     Active Substance: BEXAROTENE
     Indication: MYCOSIS FUNGOIDES STAGE III
     Route: 048
     Dates: start: 2006, end: 2006
  6. TARGRETIN [Suspect]
     Active Substance: BEXAROTENE
     Route: 048
  7. TARGRETIN [Suspect]
     Active Substance: BEXAROTENE
     Dosage: DOSE STEADILY INCREASED (UNSPECIFIED)
     Route: 048
     Dates: start: 2006

REACTIONS (4)
  - Pneumocystis jirovecii pneumonia [Recovered/Resolved]
  - CD4 lymphocytes decreased [Recovered/Resolved]
  - Hypothyroidism [Unknown]
  - Hypertriglyceridaemia [Unknown]

NARRATIVE: CASE EVENT DATE: 2006
